FAERS Safety Report 16019931 (Version 5)
Quarter: 2019Q3

REPORT INFORMATION
  Report Type: Spontaneous
  Country: US (occurrence: US)
  Receive Date: 20190228
  Receipt Date: 20190903
  Transmission Date: 20191004
  Serious: Yes (Hospitalization)
  Sender: FDA-Public Use
  Company Number: PHEH2019US008441

PATIENT
  Sex: Male

DRUGS (2)
  1. VOTRIENT [Suspect]
     Active Substance: PAZOPANIB HYDROCHLORIDE
     Indication: RENAL CANCER
     Dosage: 200 MG, QD
     Route: 048
     Dates: start: 20180119
  2. VOTRIENT [Suspect]
     Active Substance: PAZOPANIB HYDROCHLORIDE
     Indication: METASTASES TO BONE
     Dosage: 800 MG, QD (ONCE DAILY)
     Route: 048
     Dates: start: 201801

REACTIONS (5)
  - Nausea [Not Recovered/Not Resolved]
  - Haematochezia [Unknown]
  - Abdominal discomfort [Unknown]
  - Vomiting [Unknown]
  - Haematemesis [Unknown]
